FAERS Safety Report 17859656 (Version 8)
Quarter: 2020Q3

REPORT INFORMATION
  Report Type: Report from Study
  Country: BR (occurrence: BR)
  Receive Date: 20200604
  Receipt Date: 20200924
  Transmission Date: 20201103
  Serious: Yes (Other)
  Sender: FDA-Public Use
  Company Number: BR-AMGEN-BRACT2020078487

PATIENT
  Age: 61 Year
  Sex: Female

DRUGS (4)
  1. EBIX [Concomitant]
     Active Substance: MEMANTINE HYDROCHLORIDE
     Indication: PRODUCT USED FOR UNKNOWN INDICATION
     Dosage: UNK, QD, (STARTED 8 MONTHS AGO)
     Route: 048
  2. PASURTA [Suspect]
     Active Substance: ERENUMAB
     Indication: MIGRAINE
     Dosage: UNK
     Route: 065
     Dates: start: 202004
  3. ALPRAZOLAM. [Concomitant]
     Active Substance: ALPRAZOLAM
     Indication: ANXIETY
     Dosage: 2 MILLIGRAM, QD (STARTED 10 YEARS AGO)
     Route: 048
  4. PASURTA [Suspect]
     Active Substance: ERENUMAB
     Dosage: UNK
     Route: 065
     Dates: start: 202007

REACTIONS (9)
  - Swelling face [Recovered/Resolved]
  - Constipation [Recovering/Resolving]
  - Erythema [Unknown]
  - Injection site reaction [Unknown]
  - Swelling [Recovered/Resolved]
  - Pruritus [Recovered/Resolved]
  - Hypersensitivity [Not Recovered/Not Resolved]
  - Feeling abnormal [Unknown]
  - Migraine [Unknown]

NARRATIVE: CASE EVENT DATE: 202004
